FAERS Safety Report 5422237-5 (Version None)
Quarter: 2007Q3

REPORT INFORMATION
  Report Type: 
  Country: None (occurrence: None)
  Receive Date: 20070822
  Receipt Date: 20070813
  Transmission Date: 20080115
  Serious: Yes (Other)
  Sender: FDA-Public Use
  Company Number: ES-AMGEN-US239483

PATIENT
  Age: 56 Year
  Sex: Female

DRUGS (1)
  1. ENBREL [Suspect]
     Indication: RHEUMATOID ARTHRITIS

REACTIONS (3)
  - CARBOHYDRATE ANTIGEN 125 INCREASED [None]
  - CARCINOEMBRYONIC ANTIGEN INCREASED [None]
  - TUMOUR MARKER INCREASED [None]
